FAERS Safety Report 6814203-X (Version None)
Quarter: 2010Q3

REPORT INFORMATION
  Report Type: 
  Country: None (occurrence: None)
  Receive Date: 20100702
  Receipt Date: 20100624
  Transmission Date: 20110219
  Serious: Yes (Hospitalization)
  Sender: FDA-Public Use
  Company Number: NL-JNJFOC-20100608186

PATIENT
  Sex: Female

DRUGS (1)
  1. REMICADE [Suspect]
     Indication: SARCOIDOSIS
     Dosage: DOSE: ^5 MG/ML^
     Route: 042

REACTIONS (6)
  - BLEPHARITIS [None]
  - CSF PRESSURE INCREASED [None]
  - HEADACHE [None]
  - NAUSEA [None]
  - SHUNT MALFUNCTION [None]
  - VISUAL ACUITY REDUCED [None]
